FAERS Safety Report 5045683-0 (Version None)
Quarter: 2006Q3

REPORT INFORMATION
  Report Type: 
  Country: None (occurrence: None)
  Receive Date: 20060707
  Receipt Date: 20060629
  Transmission Date: 20061208
  Serious: Yes (Life-Threatening, Hospitalization)
  Sender: FDA-Public Use
  Company Number: PR-MERCK-0606USA05706

PATIENT
  Sex: Male

DRUGS (1)
  1. VYTORIN [Suspect]
     Indication: BLOOD CHOLESTEROL INCREASED
     Route: 048
     Dates: start: 20060407, end: 20060626

REACTIONS (5)
  - CARDIOMYOPATHY [None]
  - HYPOPROTEINAEMIA [None]
  - LIVEDO RETICULARIS [None]
  - PANCYTOPENIA [None]
  - SPLENOMEGALY [None]
